FAERS Safety Report 23909791 (Version 1)
Quarter: 2024Q2

REPORT INFORMATION
  Report Type: Spontaneous
  Country: JP (occurrence: JP)
  Receive Date: 20240528
  Receipt Date: 20240528
  Transmission Date: 20240715
  Serious: Yes (Disabling, Other)
  Sender: FDA-Public Use
  Company Number: JP-MYOVANT SCIENCES GMBH-2024MYSCI0500877

PATIENT
  Age: 49 Year
  Sex: Female

DRUGS (2)
  1. RELUGOLIX [Suspect]
     Active Substance: RELUGOLIX
     Indication: Adenomyosis
     Dosage: UNK
     Route: 048
     Dates: start: 20210914, end: 202203
  2. RELUGOLIX [Suspect]
     Active Substance: RELUGOLIX
     Dosage: UNK
     Route: 048
     Dates: start: 202206

REACTIONS (2)
  - Cerebral infarction [Unknown]
  - Off label use [Unknown]

NARRATIVE: CASE EVENT DATE: 20220601
